FAERS Safety Report 8096254-3 (Version None)
Quarter: 2012Q1

REPORT INFORMATION
  Report Type: 
  Country: None (occurrence: None)
  Receive Date: 20120129
  Receipt Date: 20111219
  Transmission Date: 20120608
  Serious: No
  Sender: FDA-Public Use
  Company Number: US-ABBOTT-11P-163-0885937-00

PATIENT
  Age: 43 Year
  Sex: Male
  Weight: 99.88 kg

DRUGS (1)
  1. HUMIRA [Suspect]
     Indication: PSORIASIS
     Route: 058
     Dates: start: 20111019

REACTIONS (4)
  - VOMITING [None]
  - ACUTE SINUSITIS [None]
  - NAUSEA [None]
  - WHITE BLOOD CELL COUNT INCREASED [None]
